FAERS Safety Report 6995055-4 (Version None)
Quarter: 2010Q3

REPORT INFORMATION
  Report Type: 
  Country: None (occurrence: None)
  Receive Date: 20100917
  Receipt Date: 20090807
  Transmission Date: 20110219
  Serious: Yes (Hospitalization, Other)
  Sender: FDA-Public Use
  Company Number: HQWYE957025MAY05

PATIENT
  Sex: Female
  Weight: 59.02 kg

DRUGS (10)
  1. PREMPRO [Suspect]
     Indication: HORMONE REPLACEMENT THERAPY
     Dosage: .625 MG /2.5 MG
     Route: 048
     Dates: start: 19971007, end: 20000901
  2. PREMPRO [Suspect]
     Indication: MENOPAUSAL SYMPTOMS
  3. HYDROCHLOROTHIAZIDE [Concomitant]
  4. MEDROXYPROGESTERONE ACETATE [Suspect]
     Indication: MENOPAUSAL SYMPTOMS
     Dosage: 5 MG
     Route: 048
     Dates: start: 19900101, end: 19970101
  5. NORVASC [Concomitant]
  6. PREMARIN [Suspect]
     Dosage: UNKNOWN
     Route: 048
     Dates: start: 19910101, end: 19920101
  7. PREMARIN [Suspect]
     Dosage: UNKNOWN
     Route: 048
     Dates: start: 19950101, end: 19960101
  8. ESTROPIPATE [Suspect]
     Indication: MENOPAUSAL SYMPTOMS
     Dosage: .0625 MG
     Route: 048
     Dates: start: 19900101, end: 19910101
  9. ESTROPIPATE [Suspect]
     Dosage: .0625 MG
     Route: 048
     Dates: start: 19930101, end: 19940101
  10. ESTROPIPATE [Suspect]
     Dosage: .0625 MG
     Route: 048
     Dates: start: 19960101, end: 19970101

REACTIONS (1)
  - BREAST CANCER [None]
